FAERS Safety Report 8984916 (Version 1)
Quarter: 2012Q4

REPORT INFORMATION
  Report Type: 
  Country: FR (occurrence: FR)
  Receive Date: 20121226
  Receipt Date: 20121226
  Transmission Date: 20130627
  Serious: Yes (Death, Other)
  Sender: FDA-Public Use
  Company Number: FR-009507513-1212FRA005693

PATIENT
  Age: 89 Year

DRUGS (14)
  1. INVANZ [Suspect]
     Indication: URINARY TRACT INFECTION
     Dosage: 1 g, Once
     Route: 042
     Dates: start: 20121024
  2. PERFALGAN [Suspect]
     Dosage: 1 DF, tid
     Route: 042
     Dates: start: 20121024
  3. DAFALGAN [Concomitant]
     Dosage: 1 g, tid
     Route: 048
  4. XATRAL [Concomitant]
     Dosage: 2.5 mg, qd
     Route: 048
  5. URBANYL [Concomitant]
     Dosage: 5 mg, bid
     Route: 048
  6. STABLON [Concomitant]
     Dosage: 12.5 mg, bid
     Route: 048
  7. LAMOTRIGINE [Concomitant]
     Dosage: 25 mg, qd
     Route: 048
  8. SERESTA [Concomitant]
     Dosage: 10 mg, bid
  9. IMOVANE [Concomitant]
     Dosage: 3.75 mg, qd
     Route: 048
  10. LOXEN [Concomitant]
     Dosage: 20 mg, tid
     Route: 048
  11. ATENOLOL [Concomitant]
     Dosage: 25 mg, tid
     Route: 048
  12. TAHOR [Concomitant]
     Dosage: 10 mg, qd
     Route: 048
  13. ALLOPURINOL [Concomitant]
     Dosage: 200 mg, qd
     Route: 048
  14. KARDEGIC [Concomitant]
     Dosage: 75 mg, qd
     Route: 048

REACTIONS (1)
  - Cardio-respiratory arrest [Fatal]
